FAERS Safety Report 6936498-4 (Version None)
Quarter: 2010Q3

REPORT INFORMATION
  Report Type: 
  Country: None (occurrence: None)
  Receive Date: 20100823
  Receipt Date: 20100816
  Transmission Date: 20110219
  Serious: Yes (Other)
  Sender: FDA-Public Use
  Company Number: US-PFIZER INC-2010102945

PATIENT
  Sex: Female

DRUGS (2)
  1. XALATAN [Suspect]
     Indication: GLAUCOMA
     Dosage: UNK
     Route: 047
     Dates: start: 20091207
  2. SYNTHROID [Concomitant]
     Indication: THYROID DISORDER
     Dosage: 112 UG, 1X/DAY
     Route: 048
     Dates: start: 20071227

REACTIONS (1)
  - VISION BLURRED [None]
